FAERS Safety Report 15289171 (Version 1)
Quarter: 2018Q3

REPORT INFORMATION
  Report Type: Spontaneous
  Country: US (occurrence: US)
  Receive Date: 20180803
  Receipt Date: 20180803
  Transmission Date: 20181010
  Serious: No
  Sender: FDA-Public Use
  Company Number: None

PATIENT
  Age: 32 Year
  Sex: Male
  Weight: 113.4 kg

DRUGS (1)
  1. ADALIMUMAB [Suspect]
     Active Substance: ADALIMUMAB
     Indication: PSORIASIS
     Dates: start: 20180407, end: 20180525

REACTIONS (3)
  - Hypoaesthesia [None]
  - Demyelination [None]
  - Paraesthesia [None]

NARRATIVE: CASE EVENT DATE: 20180525
